FAERS Safety Report 7556385-0 (Version None)
Quarter: 2011Q2

REPORT INFORMATION
  Report Type: 
  Country: None (occurrence: None)
  Receive Date: 20110615
  Receipt Date: 20110615
  Transmission Date: 20111010
  Serious: Yes (Hospitalization, Other)
  Sender: FDA-Public Use
  Company Number: None

PATIENT
  Sex: Male
  Weight: 99.7913 kg

DRUGS (1)
  1. SEROQUEL [Suspect]
     Indication: SCHIZOAFFECTIVE DISORDER BIPOLAR TYPE
     Dosage: 400MG PER/DAY PO
     Route: 048
     Dates: start: 20011220, end: 20020107

REACTIONS (4)
  - NERVOUS SYSTEM DISORDER [None]
  - OVERDOSE [None]
  - GAIT DISTURBANCE [None]
  - DIABETES MELLITUS [None]
